FAERS Safety Report 19991812 (Version 1)
Quarter: 2021Q4

REPORT INFORMATION
  Report Type: Spontaneous
  Country: FR (occurrence: FR)
  Receive Date: 20211025
  Receipt Date: 20211025
  Transmission Date: 20220303
  Serious: Yes (Other)
  Sender: FDA-Public Use
  Company Number: None

PATIENT
  Age: 50 Year
  Sex: Male

DRUGS (1)
  1. HYDROCHLOROTHIAZIDE\TELMISARTAN [Suspect]
     Active Substance: HYDROCHLOROTHIAZIDE\TELMISARTAN
     Indication: Product used for unknown indication
     Route: 048
     Dates: start: 20181223, end: 20181225

REACTIONS (5)
  - Angioedema [Recovered/Resolved]
  - Hemiparesis [Recovered/Resolved]
  - Visual impairment [Recovered/Resolved]
  - Chest pain [Recovered/Resolved]
  - Skin test negative [Recovered/Resolved]

NARRATIVE: CASE EVENT DATE: 20181225
